FAERS Safety Report 10639807 (Version 1)
Quarter: 2014Q4

REPORT INFORMATION
  Report Type: Spontaneous
  Country: BR (occurrence: BR)
  Receive Date: 20141209
  Receipt Date: 20141209
  Transmission Date: 20150529
  Serious: Yes (Hospitalization)
  Sender: FDA-Public Use
  Company Number: BR-009507513-1412BRA003685

PATIENT
  Age: 32 Year
  Sex: Female
  Weight: 94 kg

DRUGS (2)
  1. MERCILON  CONTI [Suspect]
     Active Substance: DESOGESTREL\ETHINYL ESTRADIOL
     Indication: OVARIAN CYST
     Dosage: 1 DF, QD
     Route: 048
     Dates: start: 1994
  2. METFORMIN (GENERIC DRUG) [Concomitant]
     Indication: OVARIAN CYST
     Dosage: 750 MG, QD
     Dates: start: 1994

REACTIONS (4)
  - Off label use [Unknown]
  - Haemorrhage [Recovered/Resolved]
  - Drug administration error [Unknown]
  - Fibromyalgia [Unknown]

NARRATIVE: CASE EVENT DATE: 1994
